FAERS Safety Report 9858164 (Version 3)
Quarter: 2014Q1

REPORT INFORMATION
  Report Type: Spontaneous
  Country: GB (occurrence: None)
  Receive Date: 20140129
  Receipt Date: 20140311
  Transmission Date: 20141002
  Serious: Yes (Other)
  Sender: FDA-Public Use
  Company Number: 2142960

PATIENT
  Sex: Female

DRUGS (18)
  1. (METHOTREXATE) [Suspect]
     Indication: URTICARIA CHRONIC
     Route: 048
  2. (METHOTREXATE) [Suspect]
     Indication: ANGIOEDEMA
     Route: 048
  3. CICLOSPORIN [Suspect]
     Indication: URTICARIA CHRONIC
  4. CICLOSPORIN [Suspect]
     Indication: ANGIOEDEMA
  5. PREDNISOLONE [Suspect]
     Indication: URTICARIA CHRONIC
     Dosage: 40 MG MILLIGRAM (S) UNKNOWN, UNKNOWN
  6. PREDNISOLONE [Suspect]
     Indication: ANGIOEDEMA
     Dosage: 40 MG MILLIGRAM (S) UNKNOWN, UNKNOWN
  7. CETIRIZINE [Suspect]
     Indication: URTICARIA CHRONIC
  8. CETIRIZINE [Suspect]
     Indication: ANGIOEDEMA
  9. LORATADINE [Suspect]
     Indication: PRODUCT USED FOR UNKNOWN INDICATION
  10. LORATADINE [Suspect]
     Indication: ANGIOEDEMA
  11. FEXOFENADINE [Suspect]
     Indication: URTICARIA CHRONIC
     Dosage: UNKNOWN , UNKNOWN , UNKNOWN
  12. FEXOFENADINE [Suspect]
     Indication: ANGIOEDEMA
     Dosage: UNKNOWN , UNKNOWN , UNKNOWN
  13. HYDROXYZINE [Suspect]
     Indication: URTICARIA CHRONIC
  14. HYDROXYZINE [Suspect]
     Indication: ANGIOEDEMA
  15. HYDROXYCHLOROQUINE [Suspect]
     Indication: URTICARIA CHRONIC
     Dosage: 200 MG MILLIGRAM (S) , UNKNOWN , UNKNOWN
  16. HYDROXYCHLOROQUINE [Suspect]
     Indication: ANGIOEDEMA
     Dosage: 200 MG MILLIGRAM (S) , UNKNOWN , UNKNOWN
  17. DAPSONE [Suspect]
     Indication: URTICARIA CHRONIC
     Dosage: 50 MG MILLIGRAM (S) , 2 DAY , UNKNOWN?
  18. DAPSONE [Suspect]
     Indication: ANGIOEDEMA
     Dosage: 50 MG MILLIGRAM (S) , 2 DAY , UNKNOWN?

REACTIONS (5)
  - Angioedema [None]
  - Asthma [None]
  - Urticaria [None]
  - Blood pressure increased [None]
  - Drug ineffective [None]
